FAERS Safety Report 12549882 (Version 1)
Quarter: 2016Q3

REPORT INFORMATION
  Report Type: Spontaneous
  Country: FR (occurrence: FR)
  Receive Date: 20160712
  Receipt Date: 20160712
  Transmission Date: 20161109
  Serious: Yes (Hospitalization)
  Sender: FDA-Public Use
  Company Number: FR-INDIVIOR LIMITED-INDV-091928-2016

PATIENT
  Age: 41 Year
  Sex: Male

DRUGS (2)
  1. SUBOXONE [Suspect]
     Active Substance: BUPRENORPHINE HYDROCHLORIDE\NALOXONE HYDROCHLORIDE
     Indication: DRUG DEPENDENCE
     Dosage: 2MG/0.5MG, 2 TABLETS IN THE MORNING AND ONE IN THE MIDDAY
     Route: 065
     Dates: start: 201506
  2. SUBUTEX [Suspect]
     Active Substance: BUPRENORPHINE HYDROCHLORIDE
     Indication: DRUG DEPENDENCE
     Dosage: UNK
     Route: 042
     Dates: start: 201309

REACTIONS (4)
  - Intentional product use issue [Recovered/Resolved]
  - Intentional product misuse [Not Recovered/Not Resolved]
  - Deep vein thrombosis [Recovered/Resolved]
  - Post thrombotic syndrome [Recovering/Resolving]

NARRATIVE: CASE EVENT DATE: 201309
